FAERS Safety Report 5010390-7 (Version None)
Quarter: 2006Q2

REPORT INFORMATION
  Report Type: 
  Country: None (occurrence: None)
  Receive Date: 20060523
  Receipt Date: 20060510
  Transmission Date: 20061013
  Serious: Yes (Life-Threatening, Hospitalization)
  Sender: FDA-Public Use
  Company Number: 012175

PATIENT
  Age: 75 Year
  Sex: Female
  Weight: 65.3 kg

DRUGS (3)
  1. VERELAN [Suspect]
     Indication: ESSENTIAL HYPERTENSION
     Dosage: 300 MG, ONCE/DAY, ORAL
     Route: 048
     Dates: start: 20060222, end: 20060222
  2. METOPROLOL SUCCINATE [Suspect]
     Indication: HYPERTENSION
     Dosage: 100 MG, ONCE/DAY,ORAL
     Route: 048
     Dates: start: 20060221, end: 20060222
  3. HYZAAR [Concomitant]

REACTIONS (10)
  - ASTHENIA [None]
  - CARDIAC ARREST [None]
  - DIZZINESS [None]
  - DRUG INTERACTION [None]
  - DYSPNOEA [None]
  - HEART RATE DECREASED [None]
  - MALAISE [None]
  - NAUSEA [None]
  - VENTRICULAR FIBRILLATION [None]
  - VOMITING [None]
